FAERS Safety Report 6233051-5 (Version None)
Quarter: 2009Q2

REPORT INFORMATION
  Report Type: 
  Country: None (occurrence: None)
  Receive Date: 20090616
  Receipt Date: 20090616
  Transmission Date: 20091009
  Serious: No
  Sender: FDA-Public Use
  Company Number: None

PATIENT
  Age: 79 Year
  Sex: Male
  Weight: 93.23 kg

DRUGS (2)
  1. CISPLATIN [Suspect]
     Dosage: 122 MG ONCE IV
     Route: 042
     Dates: start: 20090218, end: 20090218
  2. ETOPOSIDE [Suspect]
     Dosage: 122 MG EVERY DAY IV
     Route: 042
     Dates: start: 20090218, end: 20090221

REACTIONS (1)
  - RENAL FAILURE ACUTE [None]
